FAERS Safety Report 7341144-4 (Version None)
Quarter: 2011Q1

REPORT INFORMATION
  Report Type: 
  Country: None (occurrence: None)
  Receive Date: 20110309
  Receipt Date: 20110302
  Transmission Date: 20110831
  Serious: Yes (Hospitalization, Congenital Anomaly)
  Sender: FDA-Public Use
  Company Number: A0917043A

PATIENT
  Sex: Female

DRUGS (1)
  1. PAXIL [Suspect]
     Route: 064

REACTIONS (9)
  - FALLOT'S TETRALOGY [None]
  - ATRIAL SEPTAL DEFECT [None]
  - CONGENITAL AORTIC ANOMALY [None]
  - CONGENITAL PULMONARY ARTERY ANOMALY [None]
  - DRUG EXPOSURE DURING PREGNANCY [None]
  - PULMONARY VALVE STENOSIS CONGENITAL [None]
  - CONGENITAL ANOMALY [None]
  - VENTRICULAR SEPTAL DEFECT [None]
  - CARDIAC MURMUR [None]
